FAERS Safety Report 6207403-3 (Version None)
Quarter: 2009Q2

REPORT INFORMATION
  Report Type: 
  Country: None (occurrence: None)
  Receive Date: 20090528
  Receipt Date: 20090521
  Transmission Date: 20091009
  Serious: Yes (Other)
  Sender: FDA-Public Use
  Company Number: US-PFIZER INC-2005039309

PATIENT
  Sex: Female
  Weight: 70 kg

DRUGS (8)
  1. PROVERA [Suspect]
     Indication: HORMONE REPLACEMENT THERAPY
     Dosage: UNK
     Route: 048
  2. PREMPRO [Suspect]
     Indication: HORMONE REPLACEMENT THERAPY
     Route: 065
  3. ESTROGENS [Suspect]
     Indication: HORMONE REPLACEMENT THERAPY
     Route: 065
  4. PROGESTIN INJ [Suspect]
     Indication: HORMONE REPLACEMENT THERAPY
     Route: 065
  5. ALLEGRA [Concomitant]
     Indication: SINUS DISORDER
     Dosage: UNK
     Dates: start: 20010101
  6. PLAVIX [Concomitant]
     Dosage: UNK
     Dates: start: 20030101
  7. XANAX [Concomitant]
     Indication: NERVOUSNESS
     Dosage: UNK
     Dates: start: 19990101
  8. NADOLOL [Concomitant]
     Dosage: UNK
     Dates: start: 20020221

REACTIONS (1)
  - BREAST CANCER FEMALE [None]
